FAERS Safety Report 17879567 (Version 1)
Quarter: 2020Q2

REPORT INFORMATION
  Report Type: Spontaneous
  Country: US (occurrence: US)
  Receive Date: 20200610
  Receipt Date: 20200610
  Transmission Date: 20200714
  Serious: No
  Sender: FDA-Public Use
  Company Number: US-MYLANLABS-2020M1054359

PATIENT
  Sex: Female

DRUGS (2)
  1. SCOPOLAMINE TRANSDERMAL SYSTEM [Suspect]
     Active Substance: SCOPOLAMINE
     Indication: NAUSEA
     Dosage: 1 MILLIGRAM
     Route: 062
  2. KETAMINE [Concomitant]
     Active Substance: KETAMINE
     Indication: COMPLEX REGIONAL PAIN SYNDROME
     Dosage: UNK

REACTIONS (3)
  - Drug ineffective [Unknown]
  - Product adhesion issue [Unknown]
  - Malaise [Unknown]
